FAERS Safety Report 25085878 (Version 1)
Quarter: 2025Q1

REPORT INFORMATION
  Report Type: Spontaneous
  Country: US (occurrence: US)
  Receive Date: 20250317
  Receipt Date: 20250317
  Transmission Date: 20250409
  Serious: Yes (Congenital Anomaly, Other)
  Sender: Kenvue
  Company Number: US-KENVUE-20250304154

PATIENT
  Sex: Male

DRUGS (2)
  1. TYLENOL [Suspect]
     Active Substance: ACETAMINOPHEN
     Indication: Migraine
     Route: 064
     Dates: start: 2024
  2. SUMATRIPTAN [Suspect]
     Active Substance: SUMATRIPTAN
     Indication: Migraine
     Route: 064

REACTIONS (5)
  - Foetal exposure during pregnancy [Unknown]
  - Atrial septal defect [Unknown]
  - Postnatal growth restriction [Recovered/Resolved]
  - Raynaud^s phenomenon [Unknown]
  - Umbilical cord around neck [Unknown]

NARRATIVE: CASE EVENT DATE: 20240101
